FAERS Safety Report 16288440 (Version 1)
Quarter: 2019Q2

REPORT INFORMATION
  Report Type: Spontaneous
  Country: DE (occurrence: DE)
  Receive Date: 20190509
  Receipt Date: 20190509
  Transmission Date: 20190711
  Serious: Yes (Other)
  Sender: FDA-Public Use
  Company Number: DE-PROVELL PHARMACEUTICALS-2066824

PATIENT
  Age: 83 Year
  Sex: Female

DRUGS (2)
  1. EUTHYROX [Suspect]
     Active Substance: LEVOTHYROXINE SODIUM
     Indication: POST PROCEDURAL HYPOTHYROIDISM
     Dates: start: 201604
  2. PREDNISOLONE. [Suspect]
     Active Substance: PREDNISOLONE

REACTIONS (6)
  - Glaucoma [None]
  - Rash erythematous [Recovering/Resolving]
  - Inappropriate schedule of product administration [None]
  - Skin exfoliation [Recovering/Resolving]
  - Intentional dose omission [None]
  - Rash pruritic [Recovering/Resolving]

NARRATIVE: CASE EVENT DATE: 20190425
